FAERS Safety Report 10390553 (Version 3)
Quarter: 2015Q1

REPORT INFORMATION
  Report Type: Report from Study
  Country: US (occurrence: US)
  Receive Date: 20140818
  Receipt Date: 20150128
  Transmission Date: 20150720
  Serious: Yes (Hospitalization, Other)
  Sender: FDA-Public Use
  Company Number: US-ACTELION-A-NJ2014-103577

PATIENT
  Age: 70 Year
  Sex: Female

DRUGS (1)
  1. TRACLEER [Suspect]
     Active Substance: BOSENTAN\BOSENTAN MONOHYDRATE
     Indication: PULMONARY ARTERIAL HYPERTENSION
     Dosage: 125 MG, BID
     Route: 048
     Dates: start: 20100311

REACTIONS (4)
  - Wrist fracture [Recovered/Resolved]
  - Pelvic fracture [Recovered/Resolved]
  - Fall [Recovering/Resolving]
  - Patella fracture [Recovered/Resolved]

NARRATIVE: CASE EVENT DATE: 20140804
